FAERS Safety Report 19307031 (Version 1)
Quarter: 2021Q2

REPORT INFORMATION
  Report Type: Report from Study
  Country: CA (occurrence: CA)
  Receive Date: 20210526
  Receipt Date: 20210526
  Transmission Date: 20210717
  Serious: Yes (Other)
  Sender: FDA-Public Use
  Company Number: CA-ASTRAZENECA-2021A440675

PATIENT
  Age: 40 Year
  Sex: Female

DRUGS (18)
  1. PROPRANOLOL [Suspect]
     Active Substance: PROPRANOLOL HYDROCHLORIDE
     Indication: MIGRAINE
     Dosage: 1.0DF UNKNOWN
     Route: 065
  2. ALLOPURINOL. [Suspect]
     Active Substance: ALLOPURINOL
     Indication: MIGRAINE
     Route: 065
  3. ERENUMAB AOOE [Suspect]
     Active Substance: ERENUMAB-AOOE
     Indication: MIGRAINE
     Route: 058
  4. MEFENAMIC ACID. [Suspect]
     Active Substance: MEFENAMIC ACID
     Indication: MIGRAINE
     Route: 065
  5. ZOLMITRIPTAN. [Suspect]
     Active Substance: ZOLMITRIPTAN
     Indication: MIGRAINE
     Dosage: 1.0DF UNKNOWN
     Route: 058
  6. ACETAMINOPHEN. [Suspect]
     Active Substance: ACETAMINOPHEN
     Indication: MIGRAINE
     Route: 065
  7. CYCLOBENZAPRINE. [Suspect]
     Active Substance: CYCLOBENZAPRINE
  8. NORTRIPTYLINE/FLUPENTIXOL [Suspect]
     Active Substance: FLUPENTIXOL\NORTRIPTYLINE
     Indication: MIGRAINE
     Dosage: 1.0DF UNKNOWN
     Route: 065
  9. DICLOFENAC [Suspect]
     Active Substance: DICLOFENAC
  10. DICLOFENAC [Suspect]
     Active Substance: DICLOFENAC
     Indication: PRODUCT USED FOR UNKNOWN INDICATION
     Route: 065
  11. MORPHINE SULFATE. [Suspect]
     Active Substance: MORPHINE SULFATE
     Indication: MIGRAINE
     Route: 065
  12. NEURONTIN [Suspect]
     Active Substance: GABAPENTIN
     Indication: MIGRAINE
     Route: 065
  13. GRAVOL [Suspect]
     Active Substance: DIMENHYDRINATE
     Indication: MIGRAINE
     Route: 065
  14. BOTULINUM TOXIN TYPE A [Suspect]
     Active Substance: BOTULINUM TOXIN TYPE A
     Indication: MIGRAINE
     Route: 065
  15. TRYPTOPHAN, L?/PYRIDOXINE HYDROCHLORIDE [Suspect]
     Active Substance: PYRIDOXINE\TRYPTOPHAN
     Indication: MIGRAINE
     Route: 065
  16. PROPRANOLOL HYDROCHLORIDE. [Suspect]
     Active Substance: PROPRANOLOL HYDROCHLORIDE
     Indication: MIGRAINE
     Route: 065
  17. HEXACHLOROPHENE/ERGOCALCIFEROL/LIDOCAINE [Suspect]
     Active Substance: ERGOCALCIFEROL\HEXACHLOROPHENE\LIDOCAINE
     Indication: MIGRAINE
     Route: 065
  18. CYCLOBENZAPRINE. [Suspect]
     Active Substance: CYCLOBENZAPRINE

REACTIONS (18)
  - Headache [Unknown]
  - Disturbance in attention [Unknown]
  - Stress [Unknown]
  - Otitis media [Unknown]
  - Off label use [Unknown]
  - Myalgia [Unknown]
  - Fatigue [Unknown]
  - Discomfort [Unknown]
  - Tremor [Unknown]
  - Drug intolerance [Unknown]
  - Dizziness [Unknown]
  - Nausea [Unknown]
  - Hypotension [Unknown]
  - Paranasal cyst [Unknown]
  - Vascular malformation [Unknown]
  - Therapeutic response decreased [Unknown]
  - Mastoiditis [Unknown]
  - Drug ineffective for unapproved indication [Unknown]
